FAERS Safety Report 15516322 (Version 1)
Quarter: 2018Q4

REPORT INFORMATION
  Report Type: Spontaneous
  Country: US (occurrence: US)
  Receive Date: 20181017
  Receipt Date: 20181017
  Transmission Date: 20190205
  Serious: No
  Sender: FDA-Public Use
  Company Number: None

PATIENT
  Age: 58 Year
  Sex: Male

DRUGS (6)
  1. ATORVASTATIN [Suspect]
     Active Substance: ATORVASTATIN
     Indication: TYPE IIA HYPERLIPIDAEMIA
     Route: 048
     Dates: start: 20180816, end: 20181017
  2. FENOFIBRATE 160MG [Concomitant]
     Dates: start: 20180813
  3. OMEPRAZOLE 20MG [Concomitant]
     Active Substance: OMEPRAZOLE
     Dates: start: 20171027
  4. PROPRANOLOL ER 80MG [Concomitant]
     Dates: start: 20171027
  5. LEVOTHYROXINE 50MCG [Concomitant]
     Active Substance: LEVOTHYROXINE
     Dates: start: 20161201
  6. FOLBEE 2.5-25-1MG [Concomitant]
     Dates: start: 20180813

REACTIONS (3)
  - Skin disorder [None]
  - Angioedema [None]
  - Urticaria [None]

NARRATIVE: CASE EVENT DATE: 20181017
